FAERS Safety Report 5584401-4 (Version None)
Quarter: 2008Q1

REPORT INFORMATION
  Report Type: 
  Country: None (occurrence: None)
  Receive Date: 20080108
  Receipt Date: 20080103
  Transmission Date: 20080703
  Serious: Yes (Hospitalization)
  Sender: FDA-Public Use
  Company Number: DE-MERCK-0712DEU00003

PATIENT
  Age: 69 Year
  Sex: Female
  Weight: 75 kg

DRUGS (7)
  1. VYTORIN [Suspect]
     Indication: HYPERCHOLESTEROLAEMIA
     Route: 048
     Dates: start: 20050314, end: 20070801
  2. ETORICOXIB [Concomitant]
     Indication: OSTEOARTHRITIS
     Route: 048
  3. ASPIRIN [Concomitant]
     Indication: DIZZINESS
     Route: 048
  4. PENTOXIFYLLINE [Concomitant]
     Indication: HYPERTENSION
     Route: 048
  5. NEBIVOLOL HYDROCHLORIDE [Concomitant]
     Indication: HYPERTENSION
     Route: 048
  6. PANTOPRAZOLE SODIUM [Concomitant]
     Route: 065
  7. ACECLOFENAC [Concomitant]
     Route: 065

REACTIONS (1)
  - TENDON RUPTURE [None]
